FAERS Safety Report 9631355 (Version 1)
Quarter: 2013Q4

REPORT INFORMATION
  Report Type: Spontaneous
  Country: GB (occurrence: None)
  Receive Date: 20131015
  Receipt Date: 20131015
  Transmission Date: 20140711
  Serious: Yes (Other)
  Sender: FDA-Public Use
  Company Number: CL-526-2013

PATIENT
  Age: 41 Year
  Sex: Male

DRUGS (1)
  1. METRONIDAZOLE [Suspect]
     Indication: GINGIVITIS
     Dosage: BD/1 D, OD/1 D
     Route: 048
     Dates: start: 20130911, end: 20130912

REACTIONS (15)
  - Circulatory collapse [None]
  - Confusional state [None]
  - Diarrhoea [None]
  - Dizziness [None]
  - Dysarthria [None]
  - Pyrexia [None]
  - Mouth ulceration [None]
  - Night sweats [None]
  - Paraesthesia [None]
  - Rash [None]
  - Lymphadenopathy [None]
  - Tongue blistering [None]
  - Aphagia [None]
  - Oral pain [None]
  - Blood creatine phosphokinase increased [None]
